FAERS Safety Report 10195513 (Version 1)
Quarter: 2014Q2

REPORT INFORMATION
  Report Type: Spontaneous
  Country: CH (occurrence: CH)
  Receive Date: 20140526
  Receipt Date: 20140526
  Transmission Date: 20141212
  Serious: Yes (Hospitalization)
  Sender: FDA-Public Use
  Company Number: CH-BRISTOL-MYERS SQUIBB COMPANY-20789244

PATIENT
  Age: 67 Year
  Sex: Female
  Weight: 72 kg

DRUGS (4)
  1. YERVOY [Suspect]
     Indication: METASTATIC MALIGNANT MELANOMA
     Route: 041
     Dates: start: 20140304, end: 20140415
  2. CIPRALEX [Concomitant]
     Dosage: TABLET
     Route: 048
  3. DAFALGAN TABS 1 GM [Concomitant]
     Indication: METASTATIC MALIGNANT MELANOMA
     Route: 048
  4. TIMOPTIC DROPS [Concomitant]
     Dosage: 0.5%?1DF = 1 GTT DROPS
     Route: 047

REACTIONS (2)
  - Diarrhoea [Recovered/Resolved]
  - Hypokalaemia [Recovered/Resolved]
